FAERS Safety Report 10687882 (Version 2)
Quarter: 2015Q1

REPORT INFORMATION
  Report Type: Spontaneous
  Country: FR (occurrence: FR)
  Receive Date: 20150102
  Receipt Date: 20150219
  Transmission Date: 20150720
  Serious: Yes (Other)
  Sender: FDA-Public Use
  Company Number: FR-GLAXOSMITHKLINE-FR2014GSK041913

PATIENT
  Age: 47 Year
  Sex: Male

DRUGS (5)
  1. LAMICTAL [Suspect]
     Active Substance: LAMOTRIGINE
     Indication: BURNOUT SYNDROME
     Dosage: 200 MG, BID
     Route: 048
     Dates: start: 201405
  2. ZOLPIDEM [Concomitant]
     Active Substance: ZOLPIDEM\ZOLPIDEM TARTRATE
  3. PROPRANOLOL [Concomitant]
     Active Substance: PROPRANOLOL\PROPRANOLOL HYDROCHLORIDE
  4. BACLOFENE [Suspect]
     Active Substance: BACLOFEN
     Indication: ALCOHOL DETOXIFICATION
     Dosage: 50 MG, TID
     Route: 048
     Dates: start: 201311
  5. VERAPAMIL [Concomitant]
     Active Substance: VERAPAMIL HYDROCHLORIDE

REACTIONS (4)
  - Snoring [Recovering/Resolving]
  - Sleep apnoea syndrome [Recovering/Resolving]
  - Enuresis [Recovering/Resolving]
  - Hypertension [Recovering/Resolving]

NARRATIVE: CASE EVENT DATE: 201405
